FAERS Safety Report 8840636 (Version 2)
Quarter: 2012Q4

REPORT INFORMATION
  Report Type: 
  Country: US (occurrence: US)
  Receive Date: 20121015
  Receipt Date: 20121205
  Transmission Date: 20130627
  Serious: No
  Sender: FDA-Public Use
  Company Number: US-ASTRAZENECA-2012SE72723

PATIENT
  Age: 80 Year
  Sex: Male

DRUGS (3)
  1. NEXIUM [Suspect]
     Indication: BARRETT^S OESOPHAGUS
     Route: 048
  2. NEXIUM [Suspect]
     Indication: HIATUS HERNIA
     Route: 048
  3. ASPIRIN [Concomitant]

REACTIONS (9)
  - Parkinson^s disease [Unknown]
  - Dysgraphia [Unknown]
  - Gout [Unknown]
  - Adverse event [Unknown]
  - Thyroid disorder [Unknown]
  - Hypertension [Unknown]
  - Neuropathy peripheral [Unknown]
  - Blood cholesterol abnormal [Unknown]
  - Gastrooesophageal reflux disease [Unknown]
